FAERS Safety Report 4708877-7 (Version None)
Quarter: 2005Q3

REPORT INFORMATION
  Report Type: 
  Country: None (occurrence: None)
  Receive Date: 20050705
  Receipt Date: 20050624
  Transmission Date: 20060218
  Serious: Yes (Death, Hospitalization, Other)
  Sender: FDA-Public Use
  Company Number: 2005FR-00042

PATIENT
  Age: 20 Year
  Sex: Male
  Weight: 75 kg

DRUGS (1)
  1. IBUPROFEN [Suspect]
     Indication: PAIN
     Dosage: 1.8 - 2.4G, ORAL
     Route: 048

REACTIONS (4)
  - FLUID OVERLOAD [None]
  - PAIN [None]
  - RENAL FAILURE [None]
  - RENAL TUBULAR NECROSIS [None]
